FAERS Safety Report 13594997 (Version 1)
Quarter: 2017Q2

REPORT INFORMATION
  Report Type: Spontaneous
  Country: US (occurrence: US)
  Receive Date: 20170531
  Receipt Date: 20170531
  Transmission Date: 20170830
  Serious: No
  Sender: FDA-Public Use
  Company Number: ALCN2017US003612

PATIENT
  Age: 54 Year
  Sex: Female

DRUGS (1)
  1. SYSTANE BALANCE [Suspect]
     Active Substance: PROPYLENE GLYCOL
     Indication: DRY EYE
     Dosage: 2 GTT, Q2H
     Route: 047
     Dates: start: 20170518, end: 20170523

REACTIONS (2)
  - Ocular hyperaemia [Recovering/Resolving]
  - Eye pain [Recovering/Resolving]

NARRATIVE: CASE EVENT DATE: 20170520
